FAERS Safety Report 21993857 (Version 2)
Quarter: 2023Q1

REPORT INFORMATION
  Report Type: Spontaneous
  Country: GR (occurrence: GR)
  Receive Date: 20230215
  Receipt Date: 20230225
  Transmission Date: 20230417
  Serious: No
  Sender: FDA-Public Use
  Company Number: GR-AMGEN-GRCSP2023024024

PATIENT
  Sex: Female

DRUGS (1)
  1. REPATHA [Suspect]
     Active Substance: EVOLOCUMAB
     Indication: Exposure during pregnancy
     Dosage: UNK
     Route: 050

REACTIONS (1)
  - Paternal exposure during pregnancy [Unknown]
